FAERS Safety Report 6410566-8 (Version None)
Quarter: 2009Q4

REPORT INFORMATION
  Report Type: 
  Country: None (occurrence: None)
  Receive Date: 20091021
  Receipt Date: 20091021
  Transmission Date: 20100525
  Serious: Yes (Other)
  Sender: FDA-Public Use
  Company Number: None

PATIENT
  Age: 28 Year
  Sex: Female
  Weight: 61.2356 kg

DRUGS (1)
  1. DETROL LA [Suspect]
     Indication: HYPERTONIC BLADDER
     Dosage: 1 PER DAY PO
     Route: 048
     Dates: start: 20090529, end: 20090930

REACTIONS (2)
  - MAJOR DEPRESSION [None]
  - PARANOIA [None]
